FAERS Safety Report 23857796 (Version 1)
Quarter: 2024Q2

REPORT INFORMATION
  Report Type: Spontaneous
  Country: US (occurrence: None)
  Receive Date: 20240514
  Receipt Date: 20240514
  Transmission Date: 20240716
  Serious: Yes (Hospitalization)
  Sender: FDA-Public Use
  Company Number: None

PATIENT
  Age: 76 Year
  Sex: Male
  Weight: 98 kg

DRUGS (1)
  1. BUDESONIDE\FORMOTEROL FUMARATE [Suspect]
     Active Substance: BUDESONIDE\FORMOTEROL FUMARATE
     Dosage: OTHER STRENGTH : 80MCG/4.5MCG;?NHALE 2 PUFFS BY INHALATION TWICE A DAY AND INHALE 1 TO 2 PUFFS EVERY
     Route: 048
     Dates: start: 20240214, end: 20240223

REACTIONS (3)
  - Oropharyngeal pain [None]
  - Throat tightness [None]
  - Pharyngeal swelling [None]

NARRATIVE: CASE EVENT DATE: 20240220
